FAERS Safety Report 10592587 (Version 2)
Quarter: 2014Q4

REPORT INFORMATION
  Report Type: Spontaneous
  Country: US (occurrence: US)
  Receive Date: 20141119
  Receipt Date: 20141208
  Transmission Date: 20150529
  Serious: No
  Sender: FDA-Public Use
  Company Number: US-PFIZER INC-2014315534

PATIENT
  Age: 73 Year
  Sex: Female
  Weight: 86 kg

DRUGS (3)
  1. SUTENT [Suspect]
     Active Substance: SUNITINIB MALATE
     Dosage: 50 MG, 1X/DAY (3 WEEKS THEN OFF 2 WEEKS )
  2. SUTENT [Suspect]
     Active Substance: SUNITINIB MALATE
     Dosage: 37.5 MG, 1X/DAY (FOR TWO WEEKS, THEN OFF FOR ONE WEEK)
     Dates: start: 201307
  3. SUTENT [Suspect]
     Active Substance: SUNITINIB MALATE
     Indication: NEOPLASM MALIGNANT
     Dosage: 37.5 MG, UNK, TWO WEEKS AND OFF A WEEK
     Route: 048
     Dates: start: 20141104

REACTIONS (1)
  - Epistaxis [Unknown]
